FAERS Safety Report 15997285 (Version 2)
Quarter: 2020Q2

REPORT INFORMATION
  Report Type: Report from Study
  Country: US (occurrence: US)
  Receive Date: 20190222
  Receipt Date: 20200428
  Transmission Date: 20200713
  Serious: Yes (Other)
  Sender: FDA-Public Use
  Company Number: US-SA-2019SA043482

PATIENT
  Age: 79 Year
  Sex: Male

DRUGS (1)
  1. DUPILUMAB [Suspect]
     Active Substance: DUPILUMAB
     Indication: DERMATITIS ATOPIC
     Dosage: 600 MG, 1X
     Route: 058
     Dates: start: 20190203, end: 20190203

REACTIONS (7)
  - Prostate cancer [Not Recovered/Not Resolved]
  - Dermatitis atopic [Unknown]
  - Eye swelling [Unknown]
  - Pruritus [Unknown]
  - Eye pruritus [Unknown]
  - Rash [Unknown]
  - Product dose omission [Unknown]

NARRATIVE: CASE EVENT DATE: 202002
